FAERS Safety Report 10242692 (Version 1)
Quarter: 2014Q2

REPORT INFORMATION
  Report Type: Spontaneous
  Country: US (occurrence: US)
  Receive Date: 20140617
  Receipt Date: 20140617
  Transmission Date: 20141212
  Serious: Yes (Hospitalization, Other)
  Sender: FDA-Public Use
  Company Number: US-PFIZER INC-2014162270

PATIENT
  Age: 84 Year
  Sex: Male

DRUGS (2)
  1. TEMSIROLIMUS [Suspect]
     Indication: METASTASES TO LUNG
     Dosage: UNK, CYCLIC
     Dates: start: 20131030, end: 20131114
  2. TEMSIROLIMUS [Suspect]
     Indication: NODULE

REACTIONS (4)
  - Hypoxia [Unknown]
  - Pneumonia [Unknown]
  - Bradycardia [Unknown]
  - Pneumonitis [Unknown]
